FAERS Safety Report 8886287 (Version 1)
Quarter: 2012Q4

REPORT INFORMATION
  Report Type: 
  Country: GB (occurrence: GB)
  Receive Date: 20121105
  Receipt Date: 20121105
  Transmission Date: 20130627
  Serious: Yes (Other)
  Sender: FDA-Public Use
  Company Number: PHFR2012GB005746

PATIENT
  Sex: Female

DRUGS (13)
  1. CICLOSPORIN [Suspect]
  2. METHOTREXATE [Concomitant]
  3. LEFLUNOMIDE [Concomitant]
  4. HYDROXYCHLOROQUINE [Concomitant]
  5. ARCOXIA [Concomitant]
     Dosage: 90 MEq, daily
  6. PREDNISOLONE [Concomitant]
     Dosage: 10 mg, daily
  7. CITALOPRAM [Concomitant]
     Dosage: 30 mg, daily
  8. TRAMACET [Concomitant]
  9. HRT [Concomitant]
  10. OMEPRAZOLE [Concomitant]
  11. VENTOLIN [Concomitant]
  12. STEROIDS NOS [Concomitant]
  13. ETANERCEPT [Concomitant]
     Indication: ALPHA TUMOUR NECROSIS FACTOR INCREASED

REACTIONS (5)
  - Osteoarthritis [Unknown]
  - Rheumatoid arthritis [Unknown]
  - Arthralgia [Unknown]
  - Joint swelling [Unknown]
  - Depression [Unknown]
